FAERS Safety Report 14376398 (Version 1)
Quarter: 2018Q1

REPORT INFORMATION
  Report Type: Other
  Country: DE (occurrence: DE)
  Receive Date: 20180111
  Receipt Date: 20180111
  Transmission Date: 20180509
  Serious: Yes (Hospitalization)
  Sender: FDA-Public Use
  Company Number: DE-ASTELLAS-2018US002062

PATIENT
  Age: 76 Year
  Sex: Female

DRUGS (4)
  1. TECHNESCAN [Suspect]
     Active Substance: TECHNETIUM TC-99M OXIDRONATE
     Indication: CORONARY ARTERY DISEASE
     Dosage: 1 DOSAGE, UNKNOWN FREQ.
     Route: 042
     Dates: start: 20170829, end: 20170829
  2. LEVODOPA [Concomitant]
     Active Substance: LEVODOPA
     Indication: PRODUCT USED FOR UNKNOWN INDICATION
     Dosage: UNK UNK, UNKNOWN FREQ.
     Route: 065
  3. SODIUM PERTECHNETATE TC 99M [Suspect]
     Active Substance: TECHNETIUM TC-99M SODIUM PERTECHNETATE
     Indication: CORONARY ARTERY DISEASE
     Dosage: 1 DOSAGE, UNKNOWN FREQ.
     Route: 042
     Dates: start: 20170829, end: 20170829
  4. REGADENOSON [Suspect]
     Active Substance: REGADENOSON
     Indication: PRODUCT USED FOR UNKNOWN INDICATION
     Dosage: 80 ?G/ML, SINGLE, UNKNOWN FREQ.
     Route: 042
     Dates: start: 20170829, end: 20170829

REACTIONS (2)
  - Vomiting [Recovered/Resolved]
  - Dehydration [Recovered/Resolved]

NARRATIVE: CASE EVENT DATE: 20170829
